FAERS Safety Report 17225646 (Version 1)
Quarter: 2020Q1

REPORT INFORMATION
  Report Type: Spontaneous
  Country: ES (occurrence: ES)
  Receive Date: 20200102
  Receipt Date: 20200102
  Transmission Date: 20200409
  Serious: Yes (Other)
  Sender: FDA-Public Use
  Company Number: ES-MYLANLABS-2019M1132320

PATIENT
  Age: 73 Year
  Sex: Male

DRUGS (2)
  1. CLEVIDIPINE [Suspect]
     Active Substance: CLEVIDIPINE
     Indication: POSTOPERATIVE HYPERTENSION
     Dosage: UNK
     Route: 042
  2. REMIFENTANIL [Suspect]
     Active Substance: REMIFENTANIL
     Indication: ANALGESIC THERAPY
     Dosage: 0.2 ?G/KG/MIN, UNK

REACTIONS (5)
  - Premature recovery from anaesthesia [Unknown]
  - Pericardial effusion [Unknown]
  - Hypovolaemic shock [Recovered/Resolved]
  - Arterial haemorrhage [Recovered/Resolved]
  - Hypertensive crisis [Unknown]
